FAERS Safety Report 8809279 (Version 2)
Quarter: 2012Q4

REPORT INFORMATION
  Report Type: 
  Country: US (occurrence: US)
  Receive Date: 20120926
  Receipt Date: 20121002
  Transmission Date: 20130627
  Serious: Yes (Other)
  Sender: FDA-Public Use
  Company Number: US-BAYER-2012-097117

PATIENT
  Age: 58 Year
  Sex: Female

DRUGS (3)
  1. NEXAVAR [Suspect]
     Indication: HEPATIC NEOPLASM MALIGNANT
     Dosage: 200 mg, BID
     Dates: start: 20120914
  2. LISINOPRIL [Concomitant]
  3. METFORMIN [Concomitant]

REACTIONS (3)
  - Blood pressure increased [None]
  - Headache [None]
  - Abdominal pain upper [Recovered/Resolved]
